FAERS Safety Report 4811445-X (Version None)
Quarter: 2005Q4

REPORT INFORMATION
  Report Type: 
  Country: None (occurrence: None)
  Receive Date: 20051025
  Receipt Date: 20051025
  Transmission Date: 20060501
  Serious: Yes (Hospitalization)
  Sender: FDA-Public Use
  Company Number: None

PATIENT
  Age: 4 Year
  Sex: Female
  Weight: 16 kg

DRUGS (1)
  1. GAMIMUNE [Suspect]
     Indication: OPSOCLONUS MYOCLONUS
     Dates: start: 20051017

REACTIONS (1)
  - MENINGITIS ASEPTIC [None]
